FAERS Safety Report 5660833-0 (Version None)
Quarter: 2008Q1

REPORT INFORMATION
  Report Type: 
  Country: None (occurrence: None)
  Receive Date: 20080311
  Receipt Date: 20080311
  Transmission Date: 20080703
  Serious: Yes (Hospitalization)
  Sender: FDA-Public Use
  Company Number: A0714418A

PATIENT
  Age: 83 Year
  Sex: Male

DRUGS (11)
  1. ALLI [Suspect]
     Indication: WEIGHT LOSS DIET
     Route: 048
     Dates: start: 20070101
  2. FLOMAX [Concomitant]
  3. STEROID [Concomitant]
  4. NIACIN [Concomitant]
  5. OMEGA FISH OIL [Concomitant]
  6. FOLIC ACID [Concomitant]
  7. FLAX SEED OIL [Concomitant]
  8. ATENOLOL [Concomitant]
  9. ZETIA [Concomitant]
  10. LIPITOR [Concomitant]
  11. CENTRUM SILVER [Concomitant]

REACTIONS (3)
  - DIZZINESS [None]
  - HEART RATE INCREASED [None]
  - NEPHROLITHIASIS [None]
